FAERS Safety Report 18194987 (Version 2)
Quarter: 2020Q3

REPORT INFORMATION
  Report Type: Report from Study
  Country: None (occurrence: AR)
  Receive Date: 20200826
  Receipt Date: 20200928
  Transmission Date: 20201103
  Serious: Yes (Other)
  Sender: FDA-Public Use
  Company Number: AR-ABBVIE-20K-007-3536203-00

PATIENT
  Age: 59 Year
  Sex: Female

DRUGS (1)
  1. HUMIRA [Suspect]
     Active Substance: ADALIMUMAB
     Indication: RHEUMATOID ARTHRITIS
     Route: 058
     Dates: start: 20180228

REACTIONS (4)
  - Intentional product misuse [Unknown]
  - Lung disorder [Not Recovered/Not Resolved]
  - Scan abnormal [Not Recovered/Not Resolved]
  - Spondylitis [Recovering/Resolving]

NARRATIVE: CASE EVENT DATE: 202005
